FAERS Safety Report 5533318-X (Version None)
Quarter: 2007Q4

REPORT INFORMATION
  Report Type: 
  Country: None (occurrence: None)
  Receive Date: 20071204
  Receipt Date: 20071122
  Transmission Date: 20080405
  Serious: Yes (Hospitalization)
  Sender: FDA-Public Use
  Company Number: JP-ELI_LILLY_AND_COMPANY-JP200711006751

PATIENT
  Sex: Female
  Weight: 59.4 kg

DRUGS (5)
  1. ZYPREXA [Suspect]
     Indication: SCHIZOPHRENIA
     Dosage: 10 MG, DAILY (1/D)
     Route: 048
     Dates: start: 20071004, end: 20071107
  2. ZYPREXA [Suspect]
     Dosage: 7.5 MG, DAILY (1/D)
     Route: 048
     Dates: start: 20071108, end: 20071112
  3. NITRAZEPAM [Concomitant]
     Indication: INSOMNIA
     Dosage: 5 MG, DAILY (1/D)
     Route: 048
     Dates: start: 20070927, end: 20071003
  4. NITRAZEPAM [Concomitant]
     Dosage: 10 MG, DAILY (1/D)
     Route: 048
     Dates: start: 20071004
  5. GLYSENNID [Concomitant]
     Indication: CONSTIPATION
     Dosage: 3 D/F, DAILY (1/D)
     Route: 048
     Dates: start: 20070927

REACTIONS (5)
  - ACNE [None]
  - ANAEMIA [None]
  - DIET REFUSAL [None]
  - PSYCHIATRIC SYMPTOM [None]
  - WHITE BLOOD CELL COUNT DECREASED [None]
